FAERS Safety Report 15302911 (Version 1)
Quarter: 2018Q3

REPORT INFORMATION
  Report Type: Spontaneous
  Country: GB (occurrence: GB)
  Receive Date: 20180821
  Receipt Date: 20180821
  Transmission Date: 20181010
  Serious: Yes (Other)
  Sender: FDA-Public Use
  Company Number: GB-MYLANLABS-12P-167-1027118-00

PATIENT
  Age: 54 Year
  Sex: Female

DRUGS (14)
  1. MIRTAZAPINE. [Concomitant]
     Active Substance: MIRTAZAPINE
     Indication: DEPRESSION
  2. ZUMESTON [Suspect]
     Active Substance: DYDROGESTERONE\ESTRADIOL
     Indication: HORMONE REPLACEMENT THERAPY
  3. EVOREL SEQUI [Suspect]
     Active Substance: ESTRADIOL\NORETHINDRONE ACETATE
     Dosage: UNK
     Route: 062
     Dates: start: 2012, end: 20120820
  4. KLIOFEM [Suspect]
     Active Substance: ESTRADIOL\NORETHINDRONE ACETATE
     Indication: HORMONE REPLACEMENT THERAPY
  5. AMITRIPTYLINE [Concomitant]
     Active Substance: AMITRIPTYLINE
     Indication: PAIN
     Dosage: 10?50 MG AT NIGHT
     Route: 065
     Dates: start: 20120628, end: 20121010
  6. FEMOSTON [Suspect]
     Active Substance: DYDROGESTERONE\ESTRADIOL
     Indication: HORMONE REPLACEMENT THERAPY
     Dosage: 1 MG
     Route: 065
     Dates: start: 2012, end: 20120820
  7. SERTRALINE [Suspect]
     Active Substance: SERTRALINE HYDROCHLORIDE
     Indication: ANXIETY
     Dosage: 50MILLIGRAMQD
     Route: 065
     Dates: start: 20120315, end: 20120413
  8. EVOREL SEQUI [Suspect]
     Active Substance: ESTRADIOL\NORETHINDRONE ACETATE
     Indication: MENOPAUSAL SYMPTOMS
     Dosage: UNK
     Route: 062
     Dates: start: 201202, end: 201204
  9. ZOPICLONE [Concomitant]
     Active Substance: ZOPICLONE
     Indication: INSOMNIA
     Dosage: 3.75 TO 7.5 MG AT NIGHT
     Route: 065
     Dates: start: 20120330
  10. SERTRALINE [Suspect]
     Active Substance: SERTRALINE HYDROCHLORIDE
     Indication: DEPRESSION
  11. MIRTAZAPINE. [Concomitant]
     Active Substance: MIRTAZAPINE
     Indication: ANXIETY
     Dosage: 15 MG TO 30 MG
     Route: 065
     Dates: start: 20120731, end: 20121008
  12. KLIOFEM [Suspect]
     Active Substance: ESTRADIOL\NORETHINDRONE ACETATE
     Indication: MENOPAUSAL SYMPTOMS
     Dosage: UNK
     Route: 065
     Dates: start: 201204, end: 20120515
  13. CITALOPRAM [Suspect]
     Active Substance: CITALOPRAM HYDROBROMIDE
     Indication: PRODUCT USED FOR UNKNOWN INDICATION
     Dosage: UNK
     Route: 065
  14. EVOREL SEQUI [Suspect]
     Active Substance: ESTRADIOL\NORETHINDRONE ACETATE
     Indication: HORMONE REPLACEMENT THERAPY
     Dosage: UNK
     Route: 062
     Dates: start: 20120321, end: 20120716

REACTIONS (23)
  - Tinnitus [Not Recovered/Not Resolved]
  - Toothache [Not Recovered/Not Resolved]
  - Withdrawal syndrome [Not Recovered/Not Resolved]
  - Impaired work ability [Unknown]
  - Headache [Recovering/Resolving]
  - Ear pain [Not Recovered/Not Resolved]
  - Hypoacusis [Recovering/Resolving]
  - Neuralgia [Recovering/Resolving]
  - Pain of skin [Not Recovered/Not Resolved]
  - Drug ineffective [Unknown]
  - Nerve injury [Recovering/Resolving]
  - Ear discomfort [Unknown]
  - Vomiting [Recovering/Resolving]
  - Unevaluable event [Unknown]
  - Hypersensitivity [Recovering/Resolving]
  - Hypoaesthesia teeth [Not Recovered/Not Resolved]
  - Pruritus [Not Recovered/Not Resolved]
  - Fear [Recovering/Resolving]
  - Anxiety [Recovering/Resolving]
  - Otorrhoea [Recovering/Resolving]
  - Hypoaesthesia oral [Recovering/Resolving]
  - Pain [Recovering/Resolving]
  - Oral pain [Not Recovered/Not Resolved]

NARRATIVE: CASE EVENT DATE: 200303
